FAERS Safety Report 8543402-4 (Version None)
Quarter: 2012Q3

REPORT INFORMATION
  Report Type: 
  Country: None (occurrence: None)
  Receive Date: 20120719
  Receipt Date: 20120719
  Transmission Date: 20120928
  Serious: Yes (Disabling, Other)
  Sender: FDA-Public Use
  Company Number: None

PATIENT
  Age: 64 Year
  Sex: Female
  Weight: 66.8 kg

DRUGS (1)
  1. CIPROFLOXACIN 500MG TAB [Suspect]
     Indication: NEPHROLITHIASIS
     Dosage: 500MG TAB ONE TAB TWICE DAILY PO
     Route: 048
     Dates: start: 20120511, end: 20120516

REACTIONS (4)
  - NEPHROLITHIASIS [None]
  - FALL [None]
  - PAIN [None]
  - COORDINATION ABNORMAL [None]
